FAERS Safety Report 6076628-2 (Version None)
Quarter: 2009Q1

REPORT INFORMATION
  Report Type: 
  Country: None (occurrence: None)
  Receive Date: 20090213
  Receipt Date: 20081230
  Transmission Date: 20090719
  Serious: No
  Sender: FDA-Public Use
  Company Number: US-BRISTOL-MYERS SQUIBB COMPANY-14458004

PATIENT
  Age: 59 Year
  Sex: Female

DRUGS (4)
  1. IXEMPRA KIT [Suspect]
     Indication: BREAST CANCER
     Dosage: 2ND INFUSION. RECEIVED 78MG OVER 1-? HOURS INSTEAD OF OVER 3 HOURS
     Route: 042
  2. ALOXI [Concomitant]
     Indication: PREMEDICATION
  3. DEXAMETHASONE TAB [Concomitant]
     Indication: PREMEDICATION
  4. ZOMETA [Concomitant]
     Indication: PREMEDICATION

REACTIONS (2)
  - DRUG ADMINISTRATION ERROR [None]
  - NO ADVERSE EVENT [None]
